FAERS Safety Report 22131104 (Version 6)
Quarter: 2024Q3

REPORT INFORMATION
  Report Type: Spontaneous
  Country: PR (occurrence: PR)
  Receive Date: 20230323
  Receipt Date: 20240702
  Transmission Date: 20241017
  Serious: Yes (Hospitalization, Other)
  Sender: PFIZER
  Company Number: PR-PFIZER INC-202300122738

PATIENT
  Age: 61 Year
  Sex: Female

DRUGS (22)
  1. XELJANZ XR [Suspect]
     Active Substance: TOFACITINIB CITRATE
     Dosage: 11 MG, DAILY
     Route: 048
     Dates: start: 20190119
  2. XELJANZ XR [Suspect]
     Active Substance: TOFACITINIB CITRATE
     Dosage: UNK
  3. XELJANZ XR [Suspect]
     Active Substance: TOFACITINIB CITRATE
     Dosage: UNK
  4. XELJANZ XR [Suspect]
     Active Substance: TOFACITINIB CITRATE
     Dosage: UNK
     Route: 048
  5. XELJANZ XR [Suspect]
     Active Substance: TOFACITINIB CITRATE
     Dosage: 11 MG, 1X/DAY
     Route: 048
     Dates: start: 201901
  6. INDERAL [Concomitant]
     Active Substance: PROPRANOLOL HYDROCHLORIDE
     Dosage: UNK
  7. WELLBUTRIN [Concomitant]
     Active Substance: BUPROPION HYDROCHLORIDE
     Dosage: UNK
  8. TORADOL [Concomitant]
     Active Substance: KETOROLAC TROMETHAMINE
     Dosage: UNK
  9. RELAFEN [Concomitant]
     Active Substance: NABUMETONE
     Dosage: UNK
  10. CLONAZEPAM [Concomitant]
     Active Substance: CLONAZEPAM
     Dosage: UNK
  11. CYANOCOBALAMIN [Concomitant]
     Active Substance: CYANOCOBALAMIN
     Dosage: UNK
  12. CELECOXIB [Concomitant]
     Active Substance: CELECOXIB
     Dosage: UNK
  13. SEROQUEL [Concomitant]
     Active Substance: QUETIAPINE FUMARATE
     Dosage: UNK
  14. CITALOPRAM [Concomitant]
     Active Substance: CITALOPRAM\CITALOPRAM HYDROBROMIDE
     Dosage: UNK
  15. CITALOPRAM HYDROBROMIDE [Concomitant]
     Active Substance: CITALOPRAM HYDROBROMIDE
  16. PRAVASTATIN SODIUM [Concomitant]
     Active Substance: PRAVASTATIN SODIUM
  17. CYANOCOBALAMIN [Concomitant]
     Active Substance: CYANOCOBALAMIN
  18. SYNTHROID [Concomitant]
     Active Substance: LEVOTHYROXINE SODIUM
  19. WELLBUTRIN XL [Concomitant]
     Active Substance: BUPROPION HYDROCHLORIDE
  20. INDERAL LA [Concomitant]
     Active Substance: PROPRANOLOL HYDROCHLORIDE
  21. CARAFATE [Concomitant]
     Active Substance: SUCRALFATE
     Dosage: UNK
  22. LYRICA [Concomitant]
     Active Substance: PREGABALIN
     Indication: Neuralgia
     Dosage: UNK
     Dates: start: 2020

REACTIONS (14)
  - Respiratory failure [Recovered/Resolved]
  - Nephrolithiasis [Not Recovered/Not Resolved]
  - Oxygen saturation decreased [Unknown]
  - Abdominal pain [Recovering/Resolving]
  - Pancreatic enzymes increased [Recovering/Resolving]
  - Blood glucose increased [Recovering/Resolving]
  - Back pain [Unknown]
  - Urinary tract infection [Recovering/Resolving]
  - Ear infection [Not Recovered/Not Resolved]
  - Pancreatic cyst [Not Recovered/Not Resolved]
  - Abdominal discomfort [Not Recovered/Not Resolved]
  - Herpes zoster [Recovering/Resolving]
  - Gastrointestinal pain [Recovered/Resolved]
  - Fatigue [Unknown]

NARRATIVE: CASE EVENT DATE: 20230309
